FAERS Safety Report 6043115-7 (Version None)
Quarter: 2009Q1

REPORT INFORMATION
  Report Type: 
  Country: None (occurrence: None)
  Receive Date: 20090119
  Receipt Date: 20090107
  Transmission Date: 20090719
  Serious: Yes (Hospitalization)
  Sender: FDA-Public Use
  Company Number: SE-PFIZER INC-2008156528

PATIENT

DRUGS (6)
  1. BLINDED *PLACEBO [Suspect]
     Dosage: UNK
     Route: 048
     Dates: start: 20060921
  2. BLINDED EPLERENONE [Suspect]
     Dosage: UNK
     Route: 048
     Dates: start: 20060921
  3. WARFARIN [Concomitant]
     Dosage: UNK
     Route: 048
     Dates: start: 20060627
  4. BISOPROLOL [Concomitant]
     Dosage: 10 MG, 1X/DAY
     Route: 048
     Dates: start: 20080311
  5. TRIATEC [Concomitant]
     Dosage: 10 MG, 1X/DAY
     Route: 048
     Dates: start: 20060823
  6. COMBIVENT [Concomitant]
     Dosage: UNK
     Route: 055

REACTIONS (1)
  - BRONCHITIS [None]
